FAERS Safety Report 7263550-9 (Version None)
Quarter: 2011Q1

REPORT INFORMATION
  Report Type: 
  Country: None (occurrence: None)
  Receive Date: 20110130
  Receipt Date: 20101206
  Transmission Date: 20110831
  Serious: No
  Sender: FDA-Public Use
  Company Number: US-ABBOTT-10P-163-0689589-00

PATIENT
  Sex: Female

DRUGS (2)
  1. MELOXICAM [Concomitant]
     Indication: ANKYLOSING SPONDYLITIS
  2. HUMIRA [Suspect]
     Indication: ANKYLOSING SPONDYLITIS
     Dates: start: 20101001

REACTIONS (4)
  - ARTHRALGIA [None]
  - PYREXIA [None]
  - RASH ERYTHEMATOUS [None]
  - NAUSEA [None]
